FAERS Safety Report 8492027-8 (Version None)
Quarter: 2012Q3

REPORT INFORMATION
  Report Type: 
  Country: None (occurrence: None)
  Receive Date: 20120706
  Receipt Date: 20120627
  Transmission Date: 20120928
  Serious: Yes (Hospitalization, Other)
  Sender: FDA-Public Use
  Company Number: US-US-EMD SERONO, INC.-235218J08USA

PATIENT
  Sex: Female
  Weight: 50 kg

DRUGS (11)
  1. REBIF [Suspect]
     Route: 058
     Dates: start: 20090718, end: 20120501
  2. FLU SHOT [Concomitant]
     Indication: PRODUCT USED FOR UNKNOWN INDICATION
     Dates: start: 20100101
  3. ESTRADIOL [Concomitant]
     Indication: OESTROGEN REPLACEMENT THERAPY
  4. VYTORIN [Concomitant]
     Indication: BLOOD CHOLESTEROL INCREASED
  5. ESTROGEN [Concomitant]
     Indication: HOT FLUSH
  6. LORTAB [Concomitant]
     Indication: PAIN
     Dates: start: 20050101
  7. REBIF [Suspect]
     Indication: OFF LABEL USE
     Route: 058
     Dates: start: 20050721, end: 20090201
  8. LEVOTHYROXINE SODIUM [Concomitant]
     Indication: HYPOTHYROIDISM
  9. SOMA [Concomitant]
     Indication: MUSCLE SPASMS
  10. FENTANYL-100 [Concomitant]
     Indication: PAIN
  11. DEPAKOTE [Concomitant]
     Indication: CONVULSION
     Dates: start: 20050101

REACTIONS (9)
  - LYMPHADENOPATHY [None]
  - CENTRAL NERVOUS SYSTEM LESION [None]
  - LYMPHOCELE [None]
  - PETIT MAL EPILEPSY [None]
  - FACIAL BONES FRACTURE [None]
  - GRAND MAL CONVULSION [None]
  - SINUSITIS [None]
  - POST PROCEDURAL COMPLICATION [None]
  - INFLUENZA LIKE ILLNESS [None]
